FAERS Safety Report 8248294-9 (Version None)
Quarter: 2012Q1

REPORT INFORMATION
  Report Type: 
  Country: None (occurrence: None)
  Receive Date: 20120330
  Receipt Date: 20120323
  Transmission Date: 20120608
  Serious: Yes (Hospitalization, Other)
  Sender: FDA-Public Use
  Company Number: US-ABBOTT-12P-163-0918313-00

PATIENT
  Sex: Female

DRUGS (1)
  1. HUMIRA [Suspect]
     Indication: RHEUMATOID ARTHRITIS
     Route: 050
     Dates: start: 20080101, end: 20120301

REACTIONS (4)
  - HYPERSENSITIVITY [None]
  - RASH PAPULAR [None]
  - PHARYNGEAL OEDEMA [None]
  - CHEST DISCOMFORT [None]
